FAERS Safety Report 10053253 (Version 1)
Quarter: 2014Q2

REPORT INFORMATION
  Report Type: Report from Study
  Country: CA (occurrence: CA)
  Receive Date: 20140402
  Receipt Date: 20140402
  Transmission Date: 20141212
  Serious: Yes (Other)
  Sender: FDA-Public Use
  Company Number: CA-BRISTOL-MYERS SQUIBB COMPANY-20566410

PATIENT
  Age: 52 Year
  Sex: Female

DRUGS (8)
  1. ABATACEPT SUBQ INJECTION 125MG/ML [Suspect]
     Indication: RHEUMATOID ARTHRITIS
     Dosage: 1DF=125 UNITS NOS?NO LOADING DOSE
     Route: 058
     Dates: start: 20130717
  2. PREVACID [Concomitant]
  3. METHOTREXATE [Concomitant]
  4. VOLTAREN [Concomitant]
  5. PLAQUENIL [Concomitant]
  6. CELEXA [Concomitant]
  7. VITAMIN E [Concomitant]
  8. CALCIUM [Concomitant]

REACTIONS (2)
  - Arthropathy [Unknown]
  - Impaired healing [Unknown]
